FAERS Safety Report 22645771 (Version 1)
Quarter: 2023Q2

REPORT INFORMATION
  Report Type: Spontaneous
  Country: CN (occurrence: CN)
  Receive Date: 20230627
  Receipt Date: 20230627
  Transmission Date: 20230722
  Serious: Yes (Other)
  Sender: FDA-Public Use
  Company Number: None

PATIENT
  Age: 65 Year
  Sex: Female

DRUGS (2)
  1. NOVORAPID [Suspect]
     Active Substance: INSULIN ASPART
     Indication: Diabetes mellitus
     Dosage: 8 IU, QD
     Route: 058
     Dates: start: 20230128
  2. NOVORAPID [Suspect]
     Active Substance: INSULIN ASPART
     Dosage: 6 IU, TID
     Route: 058
     Dates: start: 20230128

REACTIONS (2)
  - Palpitations [Recovering/Resolving]
  - Hypoglycaemia [Recovering/Resolving]

NARRATIVE: CASE EVENT DATE: 20230128
